FAERS Safety Report 25189148 (Version 1)
Quarter: 2025Q2

REPORT INFORMATION
  Report Type: Spontaneous
  Country: FR (occurrence: FR)
  Receive Date: 20250411
  Receipt Date: 20250411
  Transmission Date: 20250717
  Serious: Yes (Hospitalization)
  Sender: MYLAN
  Company Number: FR-MYLANLABS-2025M1030501

PATIENT
  Age: 7 Year
  Sex: Female

DRUGS (17)
  1. LEVETIRACETAM [Suspect]
     Active Substance: LEVETIRACETAM
     Indication: Intellectual disability
  2. LEVETIRACETAM [Suspect]
     Active Substance: LEVETIRACETAM
     Indication: Epilepsy
  3. LAMOTRIGINE [Suspect]
     Active Substance: LAMOTRIGINE
     Indication: Intellectual disability
  4. LAMOTRIGINE [Suspect]
     Active Substance: LAMOTRIGINE
     Indication: Epilepsy
  5. METHYLPHENIDATE [Suspect]
     Active Substance: METHYLPHENIDATE
     Indication: Intellectual disability
  6. METHYLPHENIDATE [Suspect]
     Active Substance: METHYLPHENIDATE
     Indication: Epilepsy
  7. TOPIRAMATE [Suspect]
     Active Substance: TOPIRAMATE
     Indication: Intellectual disability
  8. TOPIRAMATE [Suspect]
     Active Substance: TOPIRAMATE
     Indication: Epilepsy
  9. ZONISAMIDE [Suspect]
     Active Substance: ZONISAMIDE
     Indication: Intellectual disability
  10. ZONISAMIDE [Suspect]
     Active Substance: ZONISAMIDE
     Indication: Epilepsy
  11. RISPERIDONE [Suspect]
     Active Substance: RISPERIDONE
     Indication: Intellectual disability
  12. RISPERIDONE [Suspect]
     Active Substance: RISPERIDONE
     Indication: Epilepsy
  13. MELATONIN [Suspect]
     Active Substance: MELATONIN
     Indication: Intellectual disability
  14. MELATONIN [Suspect]
     Active Substance: MELATONIN
     Indication: Epilepsy
  15. VALPROATE [Suspect]
     Active Substance: VALPROIC ACID
     Indication: Intellectual disability
  16. TRIMEPRAZINE [Suspect]
     Active Substance: TRIMEPRAZINE
     Indication: Intellectual disability
  17. TRIMEPRAZINE [Suspect]
     Active Substance: TRIMEPRAZINE
     Indication: Epilepsy

REACTIONS (2)
  - Drug ineffective [Unknown]
  - Off label use [Unknown]
